FAERS Safety Report 5813842-2 (Version None)
Quarter: 2008Q3

REPORT INFORMATION
  Report Type: 
  Country: None (occurrence: None)
  Receive Date: 20080717
  Receipt Date: 20080709
  Transmission Date: 20090109
  Serious: Yes (Congenital Anomaly, Other)
  Sender: FDA-Public Use
  Company Number: PHEH2003US08780

PATIENT
  Sex: Female

DRUGS (2)
  1. GLEEVEC [Suspect]
     Dosage: MATERNAL DOSE: 400 MG
     Route: 064
  2. HYDROXYCARBAMIDE [Suspect]
     Dosage: MATERNAL DOSE: 500 MG TID
     Route: 064

REACTIONS (3)
  - CAESAREAN SECTION [None]
  - DRUG EXPOSURE DURING PREGNANCY [None]
  - PREMATURE CLOSURE OF CRANIAL SUTURES [None]
